FAERS Safety Report 7376064-2 (Version None)
Quarter: 2011Q1

REPORT INFORMATION
  Report Type: 
  Country: None (occurrence: None)
  Receive Date: 20110325
  Receipt Date: 20110318
  Transmission Date: 20110831
  Serious: Yes (Hospitalization, Other)
  Sender: FDA-Public Use
  Company Number: BR-PFIZER INC-2011055314

PATIENT
  Age: 42 Year
  Sex: Female

DRUGS (1)
  1. NORDETTE-21 [Suspect]
     Dosage: UNK
     Route: 048
     Dates: start: 20100101, end: 20110101

REACTIONS (5)
  - WEIGHT DECREASED [None]
  - ARTHRALGIA [None]
  - HYPOTHYROIDISM [None]
  - ANAEMIA [None]
  - PAIN IN EXTREMITY [None]
